FAERS Safety Report 5364083-7 (Version None)
Quarter: 2007Q2

REPORT INFORMATION
  Report Type: 
  Country: None (occurrence: None)
  Receive Date: 20070530
  Receipt Date: 20070103
  Transmission Date: 20071010
  Serious: No
  Sender: FDA-Public Use
  Company Number: 2007PV027739

PATIENT
  Age: 55 Year
  Sex: Female

DRUGS (1)
  1. BYETTA [Suspect]
     Indication: DRUG USE FOR UNKNOWN INDICATION
     Dosage: 5 MCG;BID;SC
     Route: 058
     Dates: start: 20061201

REACTIONS (6)
  - COLD SWEAT [None]
  - DECREASED APPETITE [None]
  - INFLUENZA [None]
  - NAUSEA [None]
  - PYREXIA [None]
  - VOMITING [None]
